FAERS Safety Report 6590775-8 (Version None)
Quarter: 2010Q1

REPORT INFORMATION
  Report Type: 
  Country: None (occurrence: None)
  Receive Date: 20100219
  Receipt Date: 20100212
  Transmission Date: 20100710
  Serious: Yes (Hospitalization, Other)
  Sender: FDA-Public Use
  Company Number: HQWYE778821JAN05

PATIENT
  Sex: Female
  Weight: 132.11 kg

DRUGS (2)
  1. PREMPRO [Suspect]
     Dosage: UNKNOWN
     Route: 048
     Dates: start: 19990101, end: 20030101
  2. AVAPRO [Concomitant]
     Indication: HYPERTENSION
     Dosage: UNKNOWN
     Route: 048
     Dates: start: 19940101

REACTIONS (1)
  - CONTRALATERAL BREAST CANCER [None]
